FAERS Safety Report 18497409 (Version 2)
Quarter: 2020Q4

REPORT INFORMATION
  Report Type: Spontaneous
  Country: IT (occurrence: IT)
  Receive Date: 20201112
  Receipt Date: 20201125
  Transmission Date: 20210114
  Serious: Yes (Hospitalization)
  Sender: FDA-Public Use
  Company Number: IT-TEVA-2020-IT-1847384

PATIENT
  Age: 20 Year
  Sex: Female

DRUGS (9)
  1. ARACYTIN [Concomitant]
     Active Substance: CYTARABINE
     Indication: LUMBAR PUNCTURE
     Dosage: 30 MG
     Route: 037
     Dates: start: 20200924, end: 20201016
  2. ACICLOVIR [Concomitant]
     Active Substance: ACYCLOVIR
     Dosage: 1200 MG
     Route: 048
  3. DEURSIL [Concomitant]
     Active Substance: URSODIOL
     Dosage: 300 MG
     Route: 048
  4. OMEPRAZOLE. [Concomitant]
     Active Substance: OMEPRAZOLE
     Dosage: 40 MG
  5. CIPROXIN [Concomitant]
     Active Substance: CIPROFLOXACIN
     Dosage: 1000 MG
  6. METHOTREXATE. [Suspect]
     Active Substance: METHOTREXATE
     Indication: LUMBAR PUNCTURE
     Dosage: 12 MG
     Route: 037
     Dates: start: 20200924, end: 20201016
  7. POSACONAZOLE [Concomitant]
     Active Substance: POSACONAZOLE
     Dosage: 300 MG
  8. URBASON [Concomitant]
     Active Substance: METHYLPREDNISOLONE
     Indication: LUMBAR PUNCTURE
     Dosage: 10 MG
     Route: 037
     Dates: start: 20200924, end: 20201016
  9. BACTRIM [Concomitant]
     Active Substance: SULFAMETHOXAZOLE\TRIMETHOPRIM
     Dosage: 320 MG
     Route: 048

REACTIONS (5)
  - Confusional state [Recovering/Resolving]
  - Headache [Recovering/Resolving]
  - Vomiting [Recovering/Resolving]
  - Coma [Recovering/Resolving]
  - Areflexia [Recovering/Resolving]

NARRATIVE: CASE EVENT DATE: 20201017
